FAERS Safety Report 25849088 (Version 2)
Quarter: 2025Q4

REPORT INFORMATION
  Report Type: Spontaneous
  Country: EU (occurrence: EU)
  Receive Date: 20250925
  Receipt Date: 20251017
  Transmission Date: 20260117
  Serious: Yes (Other)
  Sender: HIKMA
  Company Number: None

PATIENT
  Age: 21 Year
  Sex: Male
  Weight: 71 kg

DRUGS (3)
  1. BLEOMYCIN [Suspect]
     Active Substance: BLEOMYCIN SULFATE
     Indication: Testicular embryonal carcinoma
     Dosage: 30 MILLIGRAM, 3W
     Route: 042
     Dates: start: 20250819, end: 20250819
  2. ETOPOSIDE [Suspect]
     Active Substance: ETOPOSIDE
     Indication: Testicular embryonal carcinoma
     Dosage: 185 MILLIGRAM, 3W
     Route: 042
     Dates: start: 20250820, end: 20250820
  3. CISPLATIN [Suspect]
     Active Substance: CISPLATIN
     Indication: Testicular embryonal carcinoma
     Dosage: 27 MILLIGRAM, 3W
     Route: 042
     Dates: start: 20250820, end: 20250820

REACTIONS (1)
  - Thrombocytopenia [Unknown]

NARRATIVE: CASE EVENT DATE: 20250902
